FAERS Safety Report 24688559 (Version 2)
Quarter: 2024Q4

REPORT INFORMATION
  Report Type: Report from Study
  Country: US (occurrence: US)
  Receive Date: 20241202
  Receipt Date: 20241210
  Transmission Date: 20250115
  Serious: Yes (Hospitalization)
  Sender: ABBVIE
  Company Number: US-ABBVIE-5999641

PATIENT
  Age: 63 Year
  Sex: Male
  Weight: 90.718 kg

DRUGS (2)
  1. HUMIRA [Suspect]
     Active Substance: ADALIMUMAB
     Indication: Crohn^s disease
     Route: 058
     Dates: start: 20200620, end: 2024
  2. ZOFRAN [Concomitant]
     Active Substance: ONDANSETRON HYDROCHLORIDE
     Indication: Nausea
     Route: 065

REACTIONS (7)
  - Intestinal obstruction [Recovering/Resolving]
  - Red blood cell sedimentation rate increased [Not Recovered/Not Resolved]
  - Vomiting [Recovered/Resolved]
  - C-reactive protein increased [Recovered/Resolved]
  - Crohn^s disease [Recovering/Resolving]
  - Intestinal obstruction [Recovered/Resolved]
  - Crohn^s disease [Recovered/Resolved]

NARRATIVE: CASE EVENT DATE: 20240801
